FAERS Safety Report 4706928-7 (Version None)
Quarter: 2005Q2

REPORT INFORMATION
  Report Type: 
  Country: None (occurrence: None)
  Receive Date: 20050630
  Receipt Date: 20050620
  Transmission Date: 20051028
  Serious: Yes (Death)
  Sender: FDA-Public Use
  Company Number: 2005S1002775

PATIENT
  Age: 87 Year
  Sex: Female

DRUGS (1)
  1. CLOZAPINE [Suspect]
     Indication: BIPOLAR DISORDER
     Dosage: 25 MG; TID; PO
     Route: 048
     Dates: start: 20020417, end: 20050301

REACTIONS (1)
  - DEATH [None]
